FAERS Safety Report 15978226 (Version 1)
Quarter: 2019Q1

REPORT INFORMATION
  Report Type: Spontaneous
  Country: US (occurrence: US)
  Receive Date: 20190219
  Receipt Date: 20190219
  Transmission Date: 20190418
  Serious: No
  Sender: FDA-Public Use
  Company Number: US-AMGEN-USASP2019021814

PATIENT
  Sex: Male

DRUGS (2)
  1. VELCADE [Concomitant]
     Active Substance: BORTEZOMIB
  2. XGEVA [Suspect]
     Active Substance: DENOSUMAB
     Indication: PLASMA CELL MYELOMA
     Dosage: UNK
     Route: 065
     Dates: start: 2018

REACTIONS (1)
  - Headache [Recovered/Resolved]
